FAERS Safety Report 8415391-4 (Version None)
Quarter: 2012Q2

REPORT INFORMATION
  Report Type: 
  Country: None (occurrence: None)
  Receive Date: 20120606
  Receipt Date: 20120601
  Transmission Date: 20120825
  Serious: Yes (Hospitalization, Other)
  Sender: FDA-Public Use
  Company Number: PHHY2010CA22776

PATIENT
  Sex: Female

DRUGS (3)
  1. SANDOSTATIN LAR [Suspect]
     Indication: NEUROENDOCRINE TUMOUR
     Dosage: 30 MG, QMO
     Route: 030
     Dates: start: 20080901
  2. SANDOSTATIN LAR [Suspect]
     Dosage: 40 MG, QMO
     Route: 030
     Dates: start: 20100326
  3. SANDOSTATIN LAR [Suspect]
     Dosage: 30 MG, QMO
     Route: 030

REACTIONS (7)
  - NEUROPATHY PERIPHERAL [None]
  - FALL [None]
  - UPPER LIMB FRACTURE [None]
  - NEOPLASM MALIGNANT [None]
  - BLOOD PRESSURE SYSTOLIC INCREASED [None]
  - INJECTION SITE PAIN [None]
  - SKIN EXFOLIATION [None]
